FAERS Safety Report 8085692-0 (Version None)
Quarter: 2012Q1

REPORT INFORMATION
  Report Type: 
  Country: None (occurrence: None)
  Receive Date: 20120128
  Receipt Date: 20110531
  Transmission Date: 20120608
  Serious: No
  Sender: FDA-Public Use
  Company Number: US-ABBOTT-11P-163-0729892-00

PATIENT
  Sex: Female

DRUGS (10)
  1. HYDROXYZINE [Concomitant]
     Indication: PSORIASIS
  2. CRESTOR [Concomitant]
     Indication: BLOOD CHOLESTEROL INCREASED
  3. ASPIRIN [Concomitant]
     Indication: CARDIOVASCULAR EVENT PROPHYLAXIS
  4. XANAX [Concomitant]
     Indication: ANXIETY
  5. DIOVAN [Concomitant]
     Indication: HYPERTENSION
  6. TRIAMCINOLONE [Concomitant]
     Indication: PSORIASIS
     Dosage: OINMENT AND CREAM
     Route: 061
  7. HUMIRA [Suspect]
     Indication: PSORIASIS
     Dates: start: 20100601, end: 20110505
  8. DOVONEX [Concomitant]
     Indication: PSORIASIS
     Route: 061
  9. METFFORMIN HYDROCHLORIDE [Concomitant]
     Indication: DIABETES MELLITUS
  10. PERCOCET [Concomitant]
     Indication: PAIN
     Dosage: AS NEEDED

REACTIONS (8)
  - PAIN [None]
  - DRUG INEFFECTIVE [None]
  - RASH [None]
  - INCREASED UPPER AIRWAY SECRETION [None]
  - LACRIMATION INCREASED [None]
  - COUGH [None]
  - URINARY TRACT INFECTION [None]
  - DYSPNOEA [None]
